FAERS Safety Report 11746357 (Version 1)
Quarter: 2015Q4

REPORT INFORMATION
  Report Type: Spontaneous
  Country: US (occurrence: None)
  Receive Date: 20151116
  Receipt Date: 20151116
  Transmission Date: 20160304
  Serious: Yes (Other)
  Sender: FDA-Public Use
  Company Number: None

PATIENT
  Age: 47 Year
  Sex: Male
  Weight: 88.45 kg

DRUGS (5)
  1. REMICADE [Concomitant]
     Active Substance: INFLIXIMAB
  2. LISINOPRIL. [Concomitant]
     Active Substance: LISINOPRIL
  3. GABAPENTIN. [Suspect]
     Active Substance: GABAPENTIN
     Indication: ATTENTION DEFICIT/HYPERACTIVITY DISORDER
     Dosage: AS NEED FOR CONCENTRATION
     Route: 048
     Dates: start: 20150402, end: 20150423
  4. SERTRALINE [Concomitant]
     Active Substance: SERTRALINE HYDROCHLORIDE
  5. IBUPROFEN. [Concomitant]
     Active Substance: IBUPROFEN

REACTIONS (6)
  - Eating disorder [None]
  - Neuralgia [None]
  - Abnormal behaviour [None]
  - Memory impairment [None]
  - Paranoia [None]
  - Insomnia [None]

NARRATIVE: CASE EVENT DATE: 20150423
